FAERS Safety Report 9244980 (Version 2)
Quarter: 2014Q1

REPORT INFORMATION
  Report Type: Spontaneous
  Country: US (occurrence: None)
  Receive Date: 20121130
  Receipt Date: 20131206
  Transmission Date: 20141002
  Serious: Yes (Hospitalization, Other)
  Sender: FDA-Public Use
  Company Number: 361092

PATIENT
  Age: 11 Year
  Sex: Male
  Weight: 57.1 kg

DRUGS (2)
  1. NOVOLOG [Suspect]
     Indication: TYPE 1 DIABETES MELLITUS
     Dosage: SLIDING SCALE, SUBCUTANEOUS
     Route: 058
     Dates: start: 2004
  2. LANTUS (INSULIN GLARGINE) [Concomitant]

REACTIONS (3)
  - Device leakage [None]
  - Product quality issue [None]
  - Diabetic ketoacidosis [None]
